FAERS Safety Report 14254954 (Version 2)
Quarter: 2017Q4

REPORT INFORMATION
  Report Type: Report from Study
  Country: AU (occurrence: AU)
  Receive Date: 20171206
  Receipt Date: 20171231
  Transmission Date: 20180321
  Serious: Yes (Hospitalization, Other)
  Sender: FDA-Public Use
  Company Number: PHHY2016AU156645

PATIENT
  Age: 44 Year
  Sex: Male
  Weight: 147 kg

DRUGS (5)
  1. PREDNISOLONE. [Concomitant]
     Active Substance: PREDNISOLONE
     Indication: LUPUS NEPHRITIS
     Dosage: 7.5 MG, QD
     Route: 048
     Dates: start: 20150319
  2. MYFORTIC [Suspect]
     Active Substance: MYCOPHENOLATE SODIUM
     Indication: LUPUS NEPHRITIS
     Dosage: 1440 MG, QD
     Route: 048
     Dates: start: 20130503
  3. MYFORTIC [Suspect]
     Active Substance: MYCOPHENOLATE SODIUM
     Dosage: 1440 MG, UNK
     Route: 048
     Dates: start: 20160902
  4. MYFORTIC [Suspect]
     Active Substance: MYCOPHENOLATE SODIUM
     Dosage: 2880 MG, UNK
     Route: 065
     Dates: start: 20130607, end: 20160901
  5. MYFORTIC [Suspect]
     Active Substance: MYCOPHENOLATE SODIUM
     Dosage: 3600 MG, UNK
     Route: 065
     Dates: start: 20130516, end: 20130606

REACTIONS (5)
  - Peritonitis [Recovered/Resolved]
  - Red blood cell count decreased [Unknown]
  - Peritonitis [Recovered/Resolved]
  - White blood cell count decreased [Unknown]
  - Peritonitis [Recovered/Resolved]

NARRATIVE: CASE EVENT DATE: 20161108
